FAERS Safety Report 14760742 (Version 2)
Quarter: 2018Q2

REPORT INFORMATION
  Report Type: Report from Study
  Country: US (occurrence: US)
  Receive Date: 20180414
  Receipt Date: 20180428
  Transmission Date: 20180711
  Serious: Yes (Hospitalization, Other)
  Sender: FDA-Public Use
  Company Number: US-TAKEDA-2018TUS009637

PATIENT
  Age: 20 Year
  Sex: Female
  Weight: 62.59 kg

DRUGS (4)
  1. HYDROCODONE [Concomitant]
     Active Substance: HYDROCODONE
     Dosage: UNK
  2. IMODIUM [Concomitant]
     Active Substance: LOPERAMIDE HYDROCHLORIDE
     Dosage: UNK
  3. PREDNISONE. [Concomitant]
     Active Substance: PREDNISONE
     Dosage: UNK
  4. VEDOLIZUMAB [Suspect]
     Active Substance: VEDOLIZUMAB
     Indication: CROHN^S DISEASE
     Dosage: 300 MG, UNK
     Route: 042
     Dates: start: 20140923

REACTIONS (6)
  - Drug level decreased [Unknown]
  - Stoma closure [Unknown]
  - Stoma site abscess [Recovered/Resolved]
  - Frequent bowel movements [Unknown]
  - Diarrhoea haemorrhagic [Unknown]
  - Ileostomy [Unknown]

NARRATIVE: CASE EVENT DATE: 20150331
